FAERS Safety Report 9454365 (Version 6)
Quarter: 2013Q4

REPORT INFORMATION
  Report Type: Report from Study
  Country: KR (occurrence: KR)
  Receive Date: 20130812
  Receipt Date: 20131011
  Transmission Date: 20140711
  Serious: Yes (Hospitalization)
  Sender: FDA-Public Use
  Company Number: KR-BRISTOL-MYERS SQUIBB COMPANY-19166123

PATIENT
  Age: 67 Year
  Sex: Male
  Weight: 55.4 kg

DRUGS (8)
  1. IPILIMUMAB [Suspect]
     Indication: GASTROOESOPHAGEAL CANCER
     Dosage: 20SP12-22NV12-10MG/KG?28FE-23MY-10MG/KG?4JUL-25JUL?23MY-23MY:554MG?4JUL:547MG?25JUL:509MG
     Route: 042
     Dates: start: 20120920, end: 20130725
  2. AMARYL [Concomitant]
     Dosage: 1DF:2TABS
     Dates: start: 20120512
  3. LOSARTAN [Concomitant]
     Dates: start: 20120512
  4. ASPIRIN [Concomitant]
     Dates: start: 20120514
  5. ACYCLOVIR [Concomitant]
     Dates: start: 20121203
  6. LEVOTHYROXINE [Concomitant]
     Dates: start: 20121204
  7. MAGNESIUM [Concomitant]
     Dates: start: 20121205
  8. PIPERACILLIN [Concomitant]

REACTIONS (1)
  - Asthenia [Recovering/Resolving]
